FAERS Safety Report 8311656-5 (Version None)
Quarter: 2012Q1

REPORT INFORMATION
  Report Type: 
  Country: None (occurrence: None)
  Receive Date: 20120315
  Receipt Date: 20110119
  Transmission Date: 20120608
  Serious: Yes (Other)
  Sender: FDA-Public Use
  Company Number: PHHY2011US01224

PATIENT
  Age: 30 Year
  Sex: Female

DRUGS (5)
  1. MTV (VITAMINS NOS) [Concomitant]
  2. LYSINE (LYSINE) [Concomitant]
  3. PROVIGIL [Concomitant]
  4. VITAMIN D [Concomitant]
  5. GILENYA [Suspect]
     Indication: RELAPSING-REMITTING MULTIPLE SCLEROSIS
     Dosage: 0.5 MG, QD, ORAL
     Route: 048
     Dates: start: 20101229

REACTIONS (3)
  - HEADACHE [None]
  - DYSPNOEA [None]
  - PARAESTHESIA [None]
